FAERS Safety Report 5577825-2 (Version None)
Quarter: 2007Q4

REPORT INFORMATION
  Report Type: 
  Country: None (occurrence: None)
  Receive Date: 20071231
  Receipt Date: 20071219
  Transmission Date: 20080405
  Serious: Yes (Other)
  Sender: FDA-Public Use
  Company Number: GB-TYCO HEALTHCARE/MALLINCKRODT-T200701586

PATIENT

DRUGS (4)
  1. MORPHINE [Suspect]
     Indication: LABOUR PAIN
     Dosage: 10 MG, SINGLE
     Route: 030
  2. MAGNESIUM SULFATE [Suspect]
     Dosage: 5 G, SINGLE OVER 25 MINUTES
  3. MAGNESIUM SULFATE [Suspect]
     Dosage: 1 G/HR INFUSION
  4. LABETALOL HCL [Concomitant]
     Indication: HYPERTENSION

REACTIONS (2)
  - RESPIRATORY DEPRESSION [None]
  - STUPOR [None]
